FAERS Safety Report 26046583 (Version 1)
Quarter: 2025Q4

REPORT INFORMATION
  Report Type: Report from Study
  Country: US (occurrence: US)
  Receive Date: 20251114
  Receipt Date: 20251114
  Transmission Date: 20260117
  Serious: Yes (Death, Hospitalization, Other)
  Sender: MERCK SHARP & DOHME LLC
  Company Number: US-009507513-2344677

PATIENT
  Age: 50 Year
  Sex: Female
  Weight: 84.6 kg

DRUGS (11)
  1. WINREVAIR [Suspect]
     Active Substance: SOTATERCEPT-CSRK
     Indication: Pulmonary arterial hypertension
     Dosage: 0.3 MG.KG, EVERY 3 WEEKS
     Route: 058
     Dates: start: 20240816, end: 20251002
  2. WINREVAIR [Suspect]
     Active Substance: SOTATERCEPT-CSRK
  3. WINREVAIR [Suspect]
     Active Substance: SOTATERCEPT-CSRK
  4. WINREVAIR [Suspect]
     Active Substance: SOTATERCEPT-CSRK
  5. VELETRI [Concomitant]
     Active Substance: EPOPROSTENOL
     Dosage: 58 NG/KG/MIN, AS DIRECTED
     Route: 042
  6. OPSUMIT [Concomitant]
     Active Substance: MACITENTAN
     Route: 048
  7. SILDENAFIL [Concomitant]
     Active Substance: SILDENAFIL
     Dosage: TIME INTERVAL: 0.33333333 DAYS
     Route: 048
  8. SPIRONOLACTONE [Concomitant]
     Active Substance: SPIRONOLACTONE
     Route: 048
  9. FUROSEMIDE [Concomitant]
     Active Substance: FUROSEMIDE
     Route: 048
  10. DIGOXIN [Concomitant]
     Active Substance: DIGOXIN
     Route: 048
  11. TAVALISSE [Concomitant]
     Active Substance: FOSTAMATINIB

REACTIONS (9)
  - Death [Fatal]
  - Haemoperitoneum [Unknown]
  - Pancreatitis acute [Unknown]
  - Pancreatolithiasis [Recovered/Resolved]
  - Shock haemorrhagic [Unknown]
  - Gastric perforation [Unknown]
  - Pulseless electrical activity [Unknown]
  - Cholecystitis [Unknown]
  - Bronchial hyperreactivity [Unknown]

NARRATIVE: CASE EVENT DATE: 20251016
